FAERS Safety Report 5556390-X (Version None)
Quarter: 2007Q4

REPORT INFORMATION
  Report Type: 
  Country: None (occurrence: None)
  Receive Date: 20071213
  Receipt Date: 20070912
  Transmission Date: 20080405
  Serious: No
  Sender: FDA-Public Use
  Company Number: US-AMGEN-KDL240803

PATIENT
  Sex: Male
  Weight: 75.8 kg

DRUGS (7)
  1. ENBREL [Suspect]
     Indication: PSORIATIC ARTHROPATHY
     Route: 058
     Dates: start: 20030201
  2. CELEBREX [Concomitant]
     Dates: start: 20070406
  3. ELAVIL [Concomitant]
  4. LIPITOR [Concomitant]
  5. LORAZEPAM [Concomitant]
  6. TRIAMTERENE AND HYDROCHLOROTHIAZIDE [Concomitant]
  7. ZOLOFT [Concomitant]

REACTIONS (5)
  - EYE SWELLING [None]
  - GINGIVITIS [None]
  - LUPUS-LIKE SYNDROME [None]
  - NEUROLOGICAL SYMPTOM [None]
  - TONGUE DISORDER [None]
